FAERS Safety Report 14623058 (Version 1)
Quarter: 2018Q1

REPORT INFORMATION
  Report Type: Spontaneous
  Country: US (occurrence: US)
  Receive Date: 20180311
  Receipt Date: 20180311
  Transmission Date: 20180509
  Serious: No
  Sender: FDA-Public Use
  Company Number: US-009507513-1802USA013509

PATIENT
  Sex: Female

DRUGS (1)
  1. PREGNYL [Suspect]
     Active Substance: CHORIOGONADOTROPIN ALFA
     Indication: WEIGHT DECREASED
     Dosage: UNSPECIFIED
     Route: 030

REACTIONS (2)
  - Product use in unapproved indication [Unknown]
  - Pregnancy test negative [Unknown]
